FAERS Safety Report 23079165 (Version 1)
Quarter: 2023Q4

REPORT INFORMATION
  Report Type: Spontaneous
  Country: US (occurrence: US)
  Receive Date: 20231018
  Receipt Date: 20231018
  Transmission Date: 20240110
  Serious: Yes (Other)
  Sender: FDA-Public Use
  Company Number: US-PFIZER INC-PV202300169229

PATIENT
  Age: 29 Year
  Sex: Female

DRUGS (1)
  1. HYDROCORTISONE [Suspect]
     Active Substance: HYDROCORTISONE
     Dosage: UNK

REACTIONS (6)
  - Streptococcal bacteraemia [Unknown]
  - Condition aggravated [Unknown]
  - Psoriasis [Recovering/Resolving]
  - Pruritus [Not Recovered/Not Resolved]
  - Erythema [Unknown]
  - Drug ineffective [Unknown]
